FAERS Safety Report 7342010-0 (Version None)
Quarter: 2011Q1

REPORT INFORMATION
  Report Type: 
  Country: None (occurrence: None)
  Receive Date: 20110309
  Receipt Date: 20110302
  Transmission Date: 20110831
  Serious: Yes (Other)
  Sender: FDA-Public Use
  Company Number: US-US-EMD SERONO, INC.-7042907

PATIENT
  Sex: Male

DRUGS (4)
  1. DIOVAN [Concomitant]
  2. REBIF [Suspect]
     Indication: MULTIPLE SCLEROSIS
     Route: 058
     Dates: start: 20030826
  3. TRAMADOL HCL [Concomitant]
     Indication: NEURALGIA
     Dates: start: 20091216, end: 20101022
  4. ALLOPURINOL [Concomitant]

REACTIONS (6)
  - NEURALGIA [None]
  - GAIT DISTURBANCE [None]
  - MULTIPLE SCLEROSIS RELAPSE [None]
  - RENAL CELL CARCINOMA [None]
  - PAIN IN EXTREMITY [None]
  - METASTASES TO LUNG [None]
